FAERS Safety Report 24815577 (Version 2)
Quarter: 2025Q1

REPORT INFORMATION
  Report Type: Report from Study
  Country: CN (occurrence: CN)
  Receive Date: 20250107
  Receipt Date: 20250121
  Transmission Date: 20250408
  Serious: Yes (Hospitalization)
  Sender: DR REDDYS
  Company Number: CN-CHN-CLI/CHN/24/0019261

PATIENT
  Age: 1 Year
  Sex: Female
  Weight: 6.5 kg

DRUGS (14)
  1. VIGABATRIN [Suspect]
     Active Substance: VIGABATRIN
     Indication: Infantile spasms
     Dosage: INITIAL DOSE: 50 MG, 3.5 ML IN THE MORNING AND 3.5 ML IN THE EVENING
     Route: 048
     Dates: start: 20241214
  2. VITAMIN D [Concomitant]
     Active Substance: VITAMIN D NOS
     Indication: Calcium deficiency
     Route: 048
     Dates: start: 202403, end: 20241226
  3. COENZYME Q10 [Concomitant]
     Active Substance: DIETARY SUPPLEMENT\UBIDECARENONE
     Indication: Cardiovascular disorder
     Route: 048
     Dates: start: 20241009
  4. VITAMIN AD [Concomitant]
     Active Substance: PETROLATUM
     Indication: Calcium deficiency
     Route: 048
     Dates: start: 20230819, end: 20241226
  5. VITAMIN B6 [Concomitant]
     Active Substance: PYRIDOXINE HYDROCHLORIDE
     Indication: Infantile spasms
     Dosage: DOSE: 1 TABLET
     Route: 048
     Dates: start: 20240527, end: 20241226
  6. LEVOCARNITINE [Concomitant]
     Active Substance: LEVOCARNITINE
     Indication: Infantile spasms
     Route: 048
     Dates: start: 20240715, end: 20241226
  7. TOPIRAMATE [Concomitant]
     Active Substance: TOPIRAMATE
     Indication: Infantile spasms
     Route: 048
     Dates: start: 20240527, end: 20241226
  8. Lysine inositol vitamin b12 [Concomitant]
     Indication: Infantile spasms
     Route: 048
     Dates: start: 20241014, end: 20241219
  9. LEVETIRACETAM [Concomitant]
     Active Substance: LEVETIRACETAM
     Indication: Infantile spasms
     Dosage: 1.5ML IN THE MORNING AND 1.5ML IN THE EVENING,
     Route: 048
     Dates: start: 20241009, end: 20241225
  10. HOUTTUYNIA [Concomitant]
     Indication: Sinusitis
     Route: 048
     Dates: start: 20241211, end: 20241213
  11. PREDNISONE ACETATE [Concomitant]
     Active Substance: PREDNISONE ACETATE
     Indication: Infantile spasms
     Dosage: DOSE: 1.5 TABLETS/TIME
     Route: 048
     Dates: start: 20240603, end: 20240609
  12. PREDNISONE ACETATE [Concomitant]
     Active Substance: PREDNISONE ACETATE
     Dosage: DOSE: 1 TABLETS/TIME
     Route: 048
     Dates: start: 20240610, end: 20240616
  13. PREDNISONE ACETATE [Concomitant]
     Active Substance: PREDNISONE ACETATE
     Dosage: DOSE: 1 TABLETS/TIME
     Route: 048
     Dates: start: 20240617, end: 20240625
  14. PREDNISONE ACETATE [Concomitant]
     Active Substance: PREDNISONE ACETATE
     Dosage: DOSE: 1.5 TABLETS/TIME
     Route: 048
     Dates: start: 20240523, end: 20240602

REACTIONS (1)
  - Pneumonia mycoplasmal [Recovered/Resolved]

NARRATIVE: CASE EVENT DATE: 20241219
